FAERS Safety Report 4331894-6 (Version None)
Quarter: 2004Q2

REPORT INFORMATION
  Report Type: 
  Country: None (occurrence: None)
  Receive Date: 20040405
  Receipt Date: 19950921
  Transmission Date: 20050107
  Serious: No
  Sender: FDA-Public Use
  Company Number: US-GLAXOSMITHKLINE-A0012005A

PATIENT
  Sex: Female

DRUGS (8)
  1. SEREVENT [Suspect]
     Indication: ASTHMA
     Dosage: 1PUFF TWICE PER DAY
     Route: 055
     Dates: start: 19940801
  2. VANCERIL [Concomitant]
     Indication: ASTHMA
     Dosage: 1PUFF TWICE PER DAY
     Route: 055
  3. SYNTHROID [Concomitant]
     Route: 048
  4. PROCARDIA [Concomitant]
     Route: 048
  5. MOTRIN [Concomitant]
     Indication: PAIN
     Route: 048
  6. CHLOROTHIAZIDE [Concomitant]
     Route: 048
  7. GLUCOPHAGE [Concomitant]
  8. WATER PILL [Concomitant]

REACTIONS (8)
  - ANAEMIA [None]
  - BACK PAIN [None]
  - BLOOD PRESSURE INCREASED [None]
  - DRY MOUTH [None]
  - FATIGUE [None]
  - HEART RATE INCREASED [None]
  - MUSCLE CRAMP [None]
  - PRURITUS [None]
